FAERS Safety Report 8512772-5 (Version None)
Quarter: 2012Q2

REPORT INFORMATION
  Report Type: 
  Country: None (occurrence: None)
  Receive Date: 20120405
  Receipt Date: 20090409
  Transmission Date: 20120825
  Serious: No
  Sender: FDA-Public Use
  Company Number: PHEH2009US03571

PATIENT
  Sex: Female

DRUGS (1)
  1. RECLAST [Suspect]
     Dates: start: 20090407

REACTIONS (5)
  - DYSSTASIA [None]
  - MYALGIA [None]
  - ABASIA [None]
  - MUSCLE SPASMS [None]
  - PAIN IN EXTREMITY [None]
